FAERS Safety Report 12500501 (Version 1)
Quarter: 2016Q2

REPORT INFORMATION
  Report Type: Not Available
  Country: None (occurrence: US)
  Receive Date: 20160627
  Receipt Date: 20160627
  Transmission Date: 20160815
  Serious: No
  Sender: FDA-Public Use
  Company Number: US-AKORN-33268

PATIENT

DRUGS (1)
  1. TOBRAMYCIN OPHTHALMIC SOLUTION 0.3%, USP [Suspect]
     Active Substance: TOBRAMYCIN

REACTIONS (1)
  - Eye irritation [Unknown]
